FAERS Safety Report 5800804-4 (Version None)
Quarter: 2008Q3

REPORT INFORMATION
  Report Type: 
  Country: None (occurrence: None)
  Receive Date: 20080703
  Receipt Date: 20080626
  Transmission Date: 20090109
  Serious: Yes (Death)
  Sender: FDA-Public Use
  Company Number: TR-MERCK-0806TUR00004

PATIENT
  Age: 13 Year
  Sex: Female

DRUGS (2)
  1. CANCIDAS [Suspect]
     Indication: FUNGAL INFECTION
     Route: 041
  2. VORICONAZOLE [Concomitant]
     Indication: ANTIFUNGAL TREATMENT
     Route: 042

REACTIONS (1)
  - DEATH [None]
